FAERS Safety Report 8313554-X (Version None)
Quarter: 2012Q2

REPORT INFORMATION
  Report Type: 
  Country: None (occurrence: None)
  Receive Date: 20120426
  Receipt Date: 20120416
  Transmission Date: 20120825
  Serious: Yes (Hospitalization, Other)
  Sender: FDA-Public Use
  Company Number: US-JNJFOC-20120407581

PATIENT
  Sex: Male

DRUGS (4)
  1. FENTANYL-100 [Suspect]
     Route: 062
  2. DURAGESIC-100 [Suspect]
     Dosage: 1999 OR 2000
     Route: 062
  3. FENTANYL-100 [Suspect]
     Indication: PAIN
     Route: 062
  4. DURAGESIC-100 [Suspect]
     Indication: PAIN
     Dosage: 1999 OR 2000
     Route: 062

REACTIONS (6)
  - COMA [None]
  - CYSTITIS [None]
  - ATRIAL FIBRILLATION [None]
  - ROAD TRAFFIC ACCIDENT [None]
  - LEG AMPUTATION [None]
  - STAPHYLOCOCCAL INFECTION [None]
